FAERS Safety Report 17918992 (Version 1)
Quarter: 2020Q2

REPORT INFORMATION
  Report Type: Spontaneous
  Country: CA (occurrence: CA)
  Receive Date: 20200619
  Receipt Date: 20200619
  Transmission Date: 20200714
  Serious: Yes (Other)
  Sender: FDA-Public Use
  Company Number: CA-UNITED THERAPEUTICS-UNT-2020-008837

PATIENT
  Age: 4 Year
  Sex: Male

DRUGS (1)
  1. UNITUXIN [Suspect]
     Active Substance: DINUTUXIMAB
     Indication: PRODUCT USED FOR UNKNOWN INDICATION
     Dosage: UNK
     Route: 041

REACTIONS (6)
  - Stridor [Unknown]
  - Tongue oedema [Unknown]
  - Lip oedema [Unknown]
  - Pruritus [Unknown]
  - Rash [Unknown]
  - Anaphylactic shock [Unknown]
